FAERS Safety Report 5731524-2 (Version None)
Quarter: 2008Q2

REPORT INFORMATION
  Report Type: 
  Country: None (occurrence: None)
  Receive Date: 20080506
  Receipt Date: 20080506
  Transmission Date: 20081010
  Serious: Yes (Death)
  Sender: FDA-Public Use
  Company Number: None

PATIENT
  Sex: Female
  Weight: 77.1115 kg

DRUGS (2)
  1. DIGITEK [Suspect]
     Indication: CARDIAC DISORDER
     Dosage: 0.125MG
     Dates: start: 20070724, end: 20071024
  2. DIGITEK [Suspect]
     Dosage: 0.25 MG

REACTIONS (3)
  - CARDIAC ARREST [None]
  - HAEMORRHAGE INTRACRANIAL [None]
  - PHARMACEUTICAL PRODUCT COMPLAINT [None]
